FAERS Safety Report 11903623 (Version 1)
Quarter: 2016Q1

REPORT INFORMATION
  Report Type: Report from Study
  Country: US (occurrence: US)
  Receive Date: 20160108
  Receipt Date: 20160108
  Transmission Date: 20160526
  Serious: No
  Sender: FDA-Public Use
  Company Number: US-ABBVIE-15P-163-1478989-00

PATIENT
  Sex: Female

DRUGS (1)
  1. VIEKIRA PAK [Suspect]
     Active Substance: DASABUVIR\OMBITASVIR\PARITAPREVIR\RITONAVIR
     Indication: CHRONIC HEPATITIS C
     Dosage: 2 TABLETS IN QAM: 1 TABLET BID
     Route: 048

REACTIONS (8)
  - Pruritus [Unknown]
  - Myalgia [Unknown]
  - Alopecia [Unknown]
  - Mood altered [Unknown]
  - Crying [Unknown]
  - Nausea [Unknown]
  - Fatigue [Unknown]
  - Insomnia [Unknown]
